FAERS Safety Report 7637088-0 (Version None)
Quarter: 2011Q3

REPORT INFORMATION
  Report Type: 
  Country: None (occurrence: None)
  Receive Date: 20110726
  Receipt Date: 20110718
  Transmission Date: 20111222
  Serious: Yes (Hospitalization, Other)
  Sender: FDA-Public Use
  Company Number: JP-ABBOTT-11P-087-0837369-00

PATIENT
  Age: 31 Year
  Sex: Male

DRUGS (15)
  1. RABEPRAZOLE SODIUM [Concomitant]
     Indication: PRODUCT USED FOR UNKNOWN INDICATION
     Dates: end: 20080323
  2. KOGENATE [Concomitant]
     Indication: PRODUCT USED FOR UNKNOWN INDICATION
     Dates: start: 20050401, end: 20050411
  3. NORVIR [Suspect]
     Indication: HIV INFECTION
     Dosage: 100 MG, DAILY
     Route: 048
     Dates: start: 20040729, end: 20050424
  4. CYSTEINE [Concomitant]
     Indication: PRODUCT USED FOR UNKNOWN INDICATION
     Dates: start: 20070418
  5. GLYCINE 1.5% [Concomitant]
     Indication: PRODUCT USED FOR UNKNOWN INDICATION
     Dates: start: 20070418
  6. EFAVIRENZ [Suspect]
     Indication: HIV INFECTION
     Dosage: 600 MG, DAILY
     Route: 048
     Dates: start: 20050425, end: 20080713
  7. STAVUDINE [Suspect]
     Indication: HIV INFECTION
     Route: 048
     Dates: start: 19981221, end: 20050424
  8. EMTRICITABINE/TENOFOVIR DISOPROXIL FUMARATE [Suspect]
     Indication: HIV INFECTION
     Dosage: 1 DOSAGE FORM, DAILY
     Route: 048
     Dates: start: 20050524
  9. GLYCYRRHIZIC ACID [Concomitant]
     Indication: PRODUCT USED FOR UNKNOWN INDICATION
     Dates: start: 20070418
  10. OCTOCOG ALFA [Concomitant]
     Indication: PRODUCT USED FOR UNKNOWN INDICATION
  11. ATAZANAVIR SULFATE [Suspect]
     Indication: HIV INFECTION
     Dosage: 400 MG, DAILY
     Route: 048
     Dates: start: 20040130, end: 20040727
  12. LAMIVUDINE [Suspect]
     Indication: HIV INFECTION
     Route: 048
     Dates: start: 19971229, end: 20050523
  13. TENOFOVIR DISOPROXIL FUMARATE [Suspect]
     Indication: HIV INFECTION
     Dosage: 300 MG, DAILY
     Route: 048
     Dates: start: 20050425, end: 20050523
  14. ATAZANAVIR SULFATE [Suspect]
     Dosage: 100 MG, DAILY
     Route: 048
     Dates: start: 20040728
  15. AMMONIUM GLYCYRRHIZINATE [Concomitant]
     Indication: PRODUCT USED FOR UNKNOWN INDICATION
     Dates: start: 20070418

REACTIONS (12)
  - STAPHYLOCOCCAL INFECTION [None]
  - LIVER FUNCTION TEST ABNORMAL [None]
  - ARTHRITIS BACTERIAL [None]
  - HEPATOSPLENOMEGALY [None]
  - ARTHRALGIA [None]
  - NAUSEA [None]
  - HAEMATOCHEZIA [None]
  - HEPATITIS [None]
  - HAEMOGLOBIN DECREASED [None]
  - ANASTOMOTIC HAEMORRHAGE [None]
  - HYPERTHERMIA [None]
  - HEPATIC CIRRHOSIS [None]
